FAERS Safety Report 8924778 (Version 1)
Quarter: 2012Q4

REPORT INFORMATION
  Report Type: 
  Country: IT (occurrence: IT)
  Receive Date: 20121126
  Receipt Date: 20121126
  Transmission Date: 20130627
  Serious: Yes (Hospitalization)
  Sender: FDA-Public Use
  Company Number: IT-PFIZER INC-2012293517

PATIENT
  Age: 80 Year
  Sex: Female

DRUGS (8)
  1. EFEXOR ER [Suspect]
     Indication: DEMENTIA ALZHEIMER^S TYPE
     Dosage: 150 mg daily
     Route: 048
     Dates: start: 20120101, end: 20121102
  2. LASIX [Suspect]
     Indication: CARDIAC FAILURE
     Dosage: 25 mg daily
     Route: 048
     Dates: start: 20120801, end: 20121102
  3. TRITTICO [Suspect]
     Indication: DEMENTIA ALZHEIMER^S TYPE
     Dosage: 2 DF, daily
     Route: 048
     Dates: start: 20120101, end: 20121102
  4. NITROGLICERINA [Concomitant]
     Dosage: 2 DF, UNK
     Route: 062
  5. BISOPROLOL FUMARATE [Concomitant]
     Dosage: 1.25 mg, UNK
     Route: 048
  6. CARDIOASPIRIN [Concomitant]
     Dosage: 1 DF, UNK
     Route: 048
  7. LANSOX [Concomitant]
     Dosage: 1 DF, UNK
     Route: 048
  8. EXELON [Concomitant]
     Dosage: 1 DF, UNK
     Route: 062

REACTIONS (5)
  - Atonic seizures [Unknown]
  - Dyspnoea [Unknown]
  - Vertigo [Unknown]
  - Fall [Unknown]
  - Off label use [Unknown]
